FAERS Safety Report 9200002 (Version 2)
Quarter: 2013Q2

REPORT INFORMATION
  Report Type: Spontaneous
  Country: US (occurrence: US)
  Receive Date: 20130329
  Receipt Date: 20130430
  Transmission Date: 20140414
  Serious: No
  Sender: FDA-Public Use
  Company Number: US-PFIZER INC-2013102302

PATIENT
  Sex: Female

DRUGS (2)
  1. LYRICA [Suspect]
     Dosage: 150 MG
  2. LYRICA [Suspect]
     Dosage: UNK
     Dates: start: 201304

REACTIONS (3)
  - Insomnia [Unknown]
  - Pain [Unknown]
  - Local swelling [Unknown]
